FAERS Safety Report 9331500 (Version 1)
Quarter: 2013Q2

REPORT INFORMATION
  Report Type: Spontaneous
  Country: US (occurrence: US)
  Receive Date: 20130605
  Receipt Date: 20130605
  Transmission Date: 20140414
  Serious: No
  Sender: FDA-Public Use
  Company Number: US-PFIZER INC-2013167208

PATIENT
  Age: 77 Year
  Sex: Male
  Weight: 113 kg

DRUGS (5)
  1. VIAGRA [Suspect]
     Indication: ERECTILE DYSFUNCTION
     Dosage: UNK (ONE FOURTH OF 100 MG TABLET)
     Route: 048
     Dates: start: 20130517
  2. VIAGRA [Suspect]
     Dosage: UNK (HALF OF 100 MG TABLET)
     Route: 048
     Dates: start: 201305, end: 201305
  3. NORVASC [Concomitant]
     Indication: HYPERTENSION
     Dosage: 5 MG, 1X/DAY
  4. LEVOTHYROXINE [Concomitant]
     Indication: THYROID DISORDER
     Dosage: 112 UG, 1X/DAY
  5. BABY ASPIRIN [Concomitant]
     Dosage: 81 MG, 1X/DAY

REACTIONS (2)
  - Drug ineffective [Unknown]
  - Headache [Recovered/Resolved]
